FAERS Safety Report 8923959 (Version 2)
Quarter: 2013Q1

REPORT INFORMATION
  Report Type: Spontaneous
  Country: US (occurrence: US)
  Receive Date: 20121126
  Receipt Date: 20130122
  Transmission Date: 20140127
  Serious: Yes (Hospitalization)
  Sender: FDA-Public Use
  Company Number: US-ASTRAZENECA-2012SE87363

PATIENT
  Age: 10 Year
  Sex: Male
  Weight: 59.6 kg

DRUGS (4)
  1. SEROQUEL [Suspect]
     Indication: AFFECTIVE DISORDER
     Dosage: 25 MG IN AM AND 25 MG AT PM
     Route: 048
  2. SEROQUEL [Suspect]
     Indication: AFFECTIVE DISORDER
     Route: 048
     Dates: start: 20100924
  3. LAMICTAL [Concomitant]
  4. TENEX [Concomitant]

REACTIONS (1)
  - Pancreatitis [Not Recovered/Not Resolved]
